FAERS Safety Report 17405181 (Version 1)
Quarter: 2020Q1

REPORT INFORMATION
  Report Type: Spontaneous
  Country: ES (occurrence: ES)
  Receive Date: 20200212
  Receipt Date: 20200212
  Transmission Date: 20200409
  Serious: Yes (Other)
  Sender: FDA-Public Use
  Company Number: ES-ROCHE-2478668

PATIENT
  Sex: Female

DRUGS (5)
  1. HERCEPTIN [Suspect]
     Active Substance: TRASTUZUMAB
     Indication: BREAST CANCER STAGE IV
     Route: 065
  2. TAXOL [Concomitant]
     Active Substance: PACLITAXEL
  3. XELODA [Concomitant]
     Active Substance: CAPECITABINE
  4. ABRAXANE [Concomitant]
     Active Substance: PACLITAXEL
  5. GEMCITABINE. [Concomitant]
     Active Substance: GEMCITABINE

REACTIONS (4)
  - Neurotoxicity [Recovered/Resolved]
  - Skin disorder [Unknown]
  - Blood disorder [Recovered/Resolved]
  - Mucosal inflammation [Unknown]
